FAERS Safety Report 21324855 (Version 1)
Quarter: 2022Q3

REPORT INFORMATION
  Report Type: Spontaneous
  Country: US (occurrence: US)
  Receive Date: 20220912
  Receipt Date: 20220912
  Transmission Date: 20221027
  Serious: Yes (Other)
  Sender: FDA-Public Use
  Company Number: US-BAXTER-2022BAX019241

PATIENT
  Age: 15 Year
  Sex: Male

DRUGS (3)
  1. IFOSFAMIDE [Suspect]
     Active Substance: IFOSFAMIDE
     Indication: Nongerminomatous germ cell tumour of the CNS
     Dosage: 6 CYCLES; ALTERNATING CYCLES OF CARBOPLATIN/ETOPOSIDE AND IFOSFAMIDE/ETOPOSIDE
     Route: 065
  2. CARBOPLATIN [Suspect]
     Active Substance: CARBOPLATIN
     Indication: Nongerminomatous germ cell tumour of the CNS
     Dosage: 6 CYCLES; ALTERNATING CYCLES OF CARBOPLATIN/ETOPOSIDE AND IFOSFAMIDE/ETOPOSIDE
     Route: 065
  3. ETOPOSIDE [Suspect]
     Active Substance: ETOPOSIDE
     Indication: Nongerminomatous germ cell tumour of the CNS
     Dosage: 6 CYCLES; ALTERNATING CYCLES OF CARBOPLATIN/ETOPOSIDE AND IFOSFAMIDE/ETOPOSIDE
     Route: 065

REACTIONS (1)
  - Diabetes insipidus [Unknown]
